FAERS Safety Report 6256113-5 (Version None)
Quarter: 2009Q2

REPORT INFORMATION
  Report Type: 
  Country: None (occurrence: None)
  Receive Date: 20090630
  Receipt Date: 20090630
  Transmission Date: 20091009
  Serious: Yes (Other)
  Sender: FDA-Public Use
  Company Number: None

PATIENT
  Age: 74 Year
  Sex: Male
  Weight: 92.9874 kg

DRUGS (1)
  1. CALCITRIOL [Suspect]
     Indication: BLOOD PARATHYROID HORMONE INCREASED
     Dosage: 1 CAPSULE PER DAY PO
     Route: 048
     Dates: start: 20090210, end: 20090626

REACTIONS (1)
  - BLOOD GLUCOSE INCREASED [None]
